FAERS Safety Report 8522628-X (Version None)
Quarter: 2012Q3

REPORT INFORMATION
  Report Type: 
  Country: None (occurrence: None)
  Receive Date: 20120719
  Receipt Date: 20120712
  Transmission Date: 20120928
  Serious: Yes (Death)
  Sender: FDA-Public Use
  Company Number: CO-JNJFOC-20120704699

PATIENT
  Sex: Female
  Weight: 76 kg

DRUGS (6)
  1. XARELTO [Suspect]
     Indication: THROMBOSIS PROPHYLAXIS
     Route: 048
     Dates: start: 20120616, end: 20120622
  2. XARELTO [Suspect]
     Indication: ATRIAL FIBRILLATION
     Route: 048
     Dates: start: 20120616, end: 20120622
  3. XARELTO [Suspect]
     Indication: CEREBROVASCULAR ACCIDENT PROPHYLAXIS
     Route: 048
     Dates: start: 20120616, end: 20120622
  4. ENALAPRIL MALEATE [Concomitant]
  5. ENTERIC COATED ACETYLSALICYCLIC ACID [Concomitant]
  6. CAPTOPRIL [Concomitant]
     Indication: HYPERTENSION

REACTIONS (1)
  - DEATH [None]
